FAERS Safety Report 11967270 (Version 1)
Quarter: 2016Q1

REPORT INFORMATION
  Report Type: Spontaneous
  Country: US (occurrence: US)
  Receive Date: 20160127
  Receipt Date: 20160127
  Transmission Date: 20160526
  Serious: No
  Sender: FDA-Public Use
  Company Number: US-009507513-1601USA009932

PATIENT
  Age: 82 Year
  Sex: Female

DRUGS (15)
  1. OXYCODONE [Concomitant]
     Active Substance: OXYCODONE
  2. ASPIRIN. [Concomitant]
     Active Substance: ASPIRIN
  3. VITAMIN B12 [Concomitant]
     Active Substance: CYANOCOBALAMIN
  4. ZOSYN [Concomitant]
     Active Substance: PIPERACILLIN SODIUM\TAZOBACTAM SODIUM
  5. RIFAMPIN. [Concomitant]
     Active Substance: RIFAMPIN
  6. PREGABALIN. [Concomitant]
     Active Substance: PREGABALIN
  7. CULTURELLE [Concomitant]
     Active Substance: LACTOBACILLUS RHAMNOSUS
  8. CUBICIN [Suspect]
     Active Substance: DAPTOMYCIN
     Indication: BACTERAEMIA
     Dosage: 6 MG/KG, ONCE A DAY
     Route: 042
     Dates: start: 20151225, end: 20160125
  9. AMLODIPINE [Concomitant]
     Active Substance: AMLODIPINE BESYLATE
  10. PRILOSEC [Concomitant]
     Active Substance: OMEPRAZOLE MAGNESIUM
  11. POTASSIUM SODIUM HYDROGEN CITRATE [Concomitant]
  12. SENNA-S [Concomitant]
     Active Substance: DOCUSATE SODIUM\SENNOSIDES
  13. FOLIC ACID. [Concomitant]
     Active Substance: FOLIC ACID
  14. PREDNISONE. [Concomitant]
     Active Substance: PREDNISONE
  15. REMERON [Concomitant]
     Active Substance: MIRTAZAPINE

REACTIONS (1)
  - Hypercalcaemia [Recovering/Resolving]

NARRATIVE: CASE EVENT DATE: 20160118
